FAERS Safety Report 14124741 (Version 1)
Quarter: 2017Q4

REPORT INFORMATION
  Report Type: Spontaneous
  Country: US (occurrence: US)
  Receive Date: 20171025
  Receipt Date: 20171025
  Transmission Date: 20180321
  Serious: No
  Sender: FDA-Public Use
  Company Number: US-BAYER-2017-205470

PATIENT
  Age: 34 Year
  Sex: Female

DRUGS (2)
  1. BORIC ACID [Concomitant]
     Active Substance: BORIC ACID
  2. MIRENA [Suspect]
     Active Substance: LEVONORGESTREL
     Indication: CONTRACEPTION
     Dosage: 20 MCG/24HR, CONT
     Route: 015
     Dates: start: 201704

REACTIONS (3)
  - Fungal infection [None]
  - Bacterial vaginosis [None]
  - Dyspareunia [None]

NARRATIVE: CASE EVENT DATE: 201705
